FAERS Safety Report 7781838-X (Version None)
Quarter: 2011Q3

REPORT INFORMATION
  Report Type: 
  Country: None (occurrence: None)
  Receive Date: 20110927
  Receipt Date: 20110922
  Transmission Date: 20111222
  Serious: Yes (Hospitalization)
  Sender: FDA-Public Use
  Company Number: IL-BRISTOL-MYERS SQUIBB COMPANY-16092488

PATIENT
  Age: 81 Year
  Sex: Male

DRUGS (5)
  1. BLINDED: SAXAGLIPTIN [Suspect]
     Indication: TYPE 2 DIABETES MELLITUS
     Dates: start: 20101222
  2. REPAGLINIDE [Suspect]
     Indication: TYPE 2 DIABETES MELLITUS
     Dates: start: 20110616
  3. ASPIRIN [Concomitant]
     Dosage: 1DF={100MG ON 22DEC10,22MAR11,05SEP11.
  4. BLINDED: PLACEBO [Suspect]
     Indication: TYPE 2 DIABETES MELLITUS
     Dates: start: 20101222
  5. MERCAPTIZOL [Concomitant]
     Dates: start: 20110825

REACTIONS (1)
  - JAUNDICE [None]
